FAERS Safety Report 12560480 (Version 1)
Quarter: 2016Q3

REPORT INFORMATION
  Report Type: Spontaneous
  Country: US (occurrence: US)
  Receive Date: 20160715
  Receipt Date: 20160715
  Transmission Date: 20161109
  Serious: No
  Sender: FDA-Public Use
  Company Number: US-JNJFOC-20160602070

PATIENT
  Sex: Female
  Weight: 55.79 kg

DRUGS (5)
  1. FOSINOPRIL [Concomitant]
     Active Substance: FOSINOPRIL
     Indication: BLOOD PRESSURE MEASUREMENT
     Dosage: DAILY,YEARS
     Route: 065
  2. PRAVASTATIN. [Concomitant]
     Active Substance: PRAVASTATIN
     Indication: BLOOD CHOLESTEROL INCREASED
     Dosage: DAILY,YEARS
     Route: 065
  3. WOMENS ROGAINE UNSCENTED [Suspect]
     Active Substance: MINOXIDIL
     Route: 061
  4. PRAMIPEXOLE. [Concomitant]
     Active Substance: PRAMIPEXOLE
     Indication: RESTLESS LEGS SYNDROME
     Dosage: DAILY,YEARS
     Route: 065
  5. WOMENS ROGAINE UNSCENTED [Suspect]
     Active Substance: MINOXIDIL
     Indication: ALOPECIA
     Dosage: HALP CAPFULL
     Route: 061
     Dates: start: 201603, end: 20160530

REACTIONS (1)
  - Alopecia [Unknown]
